FAERS Safety Report 10170982 (Version 1)
Quarter: 2014Q2

REPORT INFORMATION
  Report Type: Spontaneous
  Country: GB (occurrence: None)
  Receive Date: 20140424
  Receipt Date: 20140424
  Transmission Date: 20141212
  Serious: Yes (Hospitalization, Disabling)
  Sender: FDA-Public Use
  Company Number: E2B_00001868

PATIENT
  Sex: Female

DRUGS (10)
  1. QUETIAPINE [Suspect]
     Indication: PRODUCT USED FOR UNKNOWN INDICATION
     Route: 048
  2. AMOXICILLIN [Concomitant]
  3. ATENOLOL [Concomitant]
  4. CODEINE [Concomitant]
  5. DIAZEPAM [Concomitant]
  6. BENZYDAMINE [Concomitant]
  7. LORAZEPAM [Concomitant]
  8. MIRTAZAPINE [Concomitant]
  9. POTASSIUM CHLORIDE + SODIUM HYDROGEN CARBONATE + MACROGOL 3350 +SODIUM CHLORIDE + SODIUM BICARBONATE(MOVICOL) [Concomitant]
  10. PARACETAMOL [Concomitant]

REACTIONS (5)
  - Gait disturbance [None]
  - Movement disorder [None]
  - Blepharospasm [None]
  - Tardive dyskinesia [None]
  - Tongue movement disturbance [None]
